FAERS Safety Report 17558857 (Version 1)
Quarter: 2020Q1

REPORT INFORMATION
  Report Type: Spontaneous
  Country: US (occurrence: US)
  Receive Date: 20200318
  Receipt Date: 20200318
  Transmission Date: 20200409
  Serious: Yes (Hospitalization, Other)
  Sender: FDA-Public Use
  Company Number: US-GLAND PHARMA LIMITED-2081767

PATIENT
  Age: 22 Year
  Sex: Male

DRUGS (4)
  1. HALOPERIDOL. [Concomitant]
     Active Substance: HALOPERIDOL
     Route: 048
  2. BENZATROPINE [Concomitant]
     Active Substance: BENZTROPINE
  3. VALPROIC ACID. [Concomitant]
     Active Substance: VALPROIC ACID
     Route: 048
  4. HALOPERIDOL. [Suspect]
     Active Substance: HALOPERIDOL
     Indication: BIPOLAR DISORDER
     Route: 042

REACTIONS (2)
  - Extrapyramidal disorder [Recovered/Resolved]
  - Dysphagia [Recovered/Resolved]
